FAERS Safety Report 18859247 (Version 1)
Quarter: 2021Q1

REPORT INFORMATION
  Report Type: Spontaneous
  Country: US (occurrence: US)
  Receive Date: 20210207
  Receipt Date: 20210207
  Transmission Date: 20210420
  Serious: No
  Sender: FDA-Public Use
  Company Number: None

PATIENT
  Age: 78 Year
  Sex: Female
  Weight: 51 kg

DRUGS (1)
  1. REMDESIVIR  (REMDESIVIR 100MG/VIAL INJ) [Suspect]
     Active Substance: REMDESIVIR
     Indication: COVID-19
     Dosage: ?          OTHER ROUTE:IV?
     Dates: start: 20201222, end: 20201225

REACTIONS (3)
  - Alanine aminotransferase increased [None]
  - Hepatic enzyme increased [None]
  - Blood bilirubin increased [None]

NARRATIVE: CASE EVENT DATE: 20201226
